FAERS Safety Report 9634888 (Version 1)
Quarter: 2013Q4

REPORT INFORMATION
  Report Type: Spontaneous
  Country: US (occurrence: US)
  Receive Date: 20131021
  Receipt Date: 20131021
  Transmission Date: 20140711
  Serious: No
  Sender: FDA-Public Use
  Company Number: US-PURDUE-USA-2013-0101674

PATIENT
  Sex: Female

DRUGS (2)
  1. BUTRANS [Suspect]
     Indication: CYSTITIS INTERSTITIAL
     Dosage: 40 MCG/HR, WEEKLY
     Route: 062
  2. BUTRANS [Suspect]
     Indication: INTERVERTEBRAL DISC PROTRUSION
     Dosage: 20 MCG/HR, WEEKLY
     Route: 062
     Dates: start: 201301

REACTIONS (9)
  - Application site discolouration [Not Recovered/Not Resolved]
  - Extra dose administered [Recovered/Resolved]
  - Drug effect increased [Recovered/Resolved]
  - Application site reaction [Not Recovered/Not Resolved]
  - Skin irritation [Unknown]
  - Application site pruritus [Not Recovered/Not Resolved]
  - Euphoric mood [Unknown]
  - Drug effect decreased [Unknown]
  - Application site dryness [Unknown]
